FAERS Safety Report 12988072 (Version 1)
Quarter: 2016Q4

REPORT INFORMATION
  Report Type: Spontaneous
  Country: GB (occurrence: GB)
  Receive Date: 20161130
  Receipt Date: 20161130
  Transmission Date: 20170207
  Serious: Yes (Disabling, Other)
  Sender: FDA-Public Use
  Company Number: GB-BAYER-2016-223879

PATIENT
  Age: 52 Year
  Sex: Female
  Weight: 53 kg

DRUGS (5)
  1. CIPROFLOXACIN MONOHYDROCHLORIDE [Suspect]
     Active Substance: CIPROFLOXACIN
     Indication: URINARY TRACT INFECTION
     Dosage: 1000 MG, QD
     Route: 048
     Dates: start: 20161003, end: 20161005
  2. EVENING PRIMROSE OIL [Concomitant]
     Active Substance: EVENING PRIMROSE OIL
     Dosage: UNK
  3. NITROFURANTOIN. [Concomitant]
     Active Substance: NITROFURANTOIN
     Dosage: 100 MG, BID
  4. GENTAMICIN. [Concomitant]
     Active Substance: GENTAMICIN
     Indication: URINARY TRACT INFECTION
     Dosage: UNK
     Route: 042
     Dates: start: 20160929
  5. AMOXICILLIN. [Concomitant]
     Active Substance: AMOXICILLIN
     Indication: URINARY TRACT INFECTION
     Dosage: UNK
     Route: 042
     Dates: start: 20160929

REACTIONS (25)
  - Peripheral coldness [Recovering/Resolving]
  - Eyelid irritation [Recovered/Resolved]
  - Burning sensation [Recovered/Resolved]
  - Diplopia [Recovering/Resolving]
  - Tendonitis [Not Recovered/Not Resolved]
  - Tendonitis [Not Recovered/Not Resolved]
  - Malaise [Recovering/Resolving]
  - Photopsia [Recovered/Resolved]
  - Pruritus [Recovered/Resolved]
  - Dizziness [Recovering/Resolving]
  - Vision blurred [Recovering/Resolving]
  - Chills [Recovering/Resolving]
  - Fatigue [Recovering/Resolving]
  - Feeling abnormal [Recovering/Resolving]
  - Memory impairment [Recovering/Resolving]
  - Erythema [Recovering/Resolving]
  - Palpitations [Recovering/Resolving]
  - Anxiety [Recovering/Resolving]
  - Dry eye [Recovering/Resolving]
  - Raynaud^s phenomenon [Recovering/Resolving]
  - Eyelid oedema [Recovering/Resolving]
  - Muscle spasms [Recovering/Resolving]
  - Poor peripheral circulation [Recovering/Resolving]
  - Visual acuity reduced [Recovering/Resolving]
  - Weight bearing difficulty [Recovering/Resolving]

NARRATIVE: CASE EVENT DATE: 20161004
